FAERS Safety Report 10168943 (Version 1)
Quarter: 2014Q2

REPORT INFORMATION
  Report Type: Spontaneous
  Country: US (occurrence: None)
  Receive Date: 20140509
  Receipt Date: 20140509
  Transmission Date: 20141212
  Serious: Yes (Hospitalization)
  Sender: FDA-Public Use
  Company Number: UTC-048116

PATIENT
  Age: 50 Year
  Sex: Female
  Weight: 103.4 kg

DRUGS (2)
  1. REMODULIN [Suspect]
     Indication: COR PULMONALE CHRONIC
     Dosage: 72 UG/KG (0.05 UG/KG, 1 IN 1 MIN), SUBCUTANEOUS
     Dates: start: 20091002
  2. ADCIRCA (TADALAFIL) [Concomitant]

REACTIONS (4)
  - Infection [None]
  - Pyrexia [None]
  - Infusion site infection [None]
  - Malaise [None]
